FAERS Safety Report 8050894-6 (Version None)
Quarter: 2012Q1

REPORT INFORMATION
  Report Type: 
  Country: None (occurrence: None)
  Receive Date: 20120117
  Receipt Date: 20120109
  Transmission Date: 20120608
  Serious: Yes (Hospitalization, Other)
  Sender: FDA-Public Use
  Company Number: PHHY2011AU110752

PATIENT
  Sex: Female

DRUGS (14)
  1. PHENTERMINE [Concomitant]
     Indication: OBESITY
     Dosage: 30 MG/ DAY
     Route: 048
     Dates: start: 20111201, end: 20111207
  2. PERINDOPRIL [Concomitant]
     Indication: HYPERTENSION
     Dosage: 5 MG, MANE
  3. VENLAFAXINE [Concomitant]
     Dosage: 300 MG/ DAY
     Route: 048
     Dates: end: 20111201
  4. FUROSEMIDE [Concomitant]
     Dosage: 40 MG, MANE
  5. FLUTICASONE PROPIONATE/SALMETEROL [Concomitant]
  6. CLOZARIL [Suspect]
     Dosage: 150 MG
     Route: 048
  7. RISPERIDONE [Concomitant]
     Dosage: 2 MG, NOCTE
  8. VENLAFAXINE [Concomitant]
     Dosage: 1 DF, UNK
     Dates: start: 20111213
  9. OMEPRAZOLE [Concomitant]
     Dosage: 20 MG, MANE
  10. METFORMIN HCL [Concomitant]
     Indication: DIABETES MELLITUS
     Dosage: 1 G, BID
  11. CLOZARIL [Suspect]
     Indication: SCHIZOPHRENIA
     Dosage: 12.5 MG,
     Route: 048
     Dates: start: 20090406
  12. CLOZARIL [Suspect]
     Dosage: 75 MG/DAY
     Route: 048
     Dates: end: 20111214
  13. VALPROATE SODIUM [Concomitant]
     Dosage: 1500 MG,(500MG MANE AND 1000MG NOCTE)
     Dates: end: 20111201
  14. SERTRALINE HYDROCHLORIDE [Concomitant]
     Dosage: 25 MG, UNK
     Dates: start: 20111214

REACTIONS (4)
  - ELECTROCARDIOGRAM QT PROLONGED [None]
  - SCHIZOPHRENIA [None]
  - DYSGRAPHIA [None]
  - ANTIPSYCHOTIC DRUG LEVEL BELOW THERAPEUTIC [None]
